FAERS Safety Report 17962049 (Version 1)
Quarter: 2020Q2

REPORT INFORMATION
  Report Type: Report from Study
  Country: KR (occurrence: KR)
  Receive Date: 20200629
  Receipt Date: 20200629
  Transmission Date: 20200714
  Serious: Yes (Death, Hospitalization)
  Sender: FDA-Public Use
  Company Number: KR-CELLTRION INC.-2020KR023695

PATIENT

DRUGS (6)
  1. TRAJENTA DUO [Concomitant]
     Active Substance: LINAGLIPTIN\METFORMIN HYDROCHLORIDE
     Indication: DIABETES MELLITUS
     Dosage: 1 TAB QD
     Route: 048
     Dates: start: 2019
  2. HARNAL [Concomitant]
     Active Substance: TAMSULOSIN HYDROCHLORIDE
     Indication: BENIGN PROSTATIC HYPERPLASIA
     Dosage: 0.2 MILLIGRAM, QD
     Route: 048
     Dates: start: 2019
  3. TRUXIMA [Suspect]
     Active Substance: RITUXIMAB-ABBS
     Indication: DIFFUSE LARGE B-CELL LYMPHOMA
     Dosage: 619 MILLIGRAM EVERY 3 WEEKS
     Route: 042
     Dates: start: 20191213, end: 20200130
  4. GLIMEL [GLIMEPIRIDE] [Concomitant]
     Indication: DIABETES MELLITUS
     Dosage: 2 MILLIGRAM, QD
     Route: 048
     Dates: start: 2019
  5. FINASTAR [Concomitant]
     Indication: BENIGN PROSTATIC HYPERPLASIA
     Dosage: 5 MILLIGRAM, QD
     Route: 048
     Dates: start: 2019
  6. ORODIPINE [Concomitant]
     Active Substance: AMLODIPINE OROTATE
     Indication: HYPERTENSION
     Dosage: 5 MILLIGRAM, QD
     Route: 048
     Dates: start: 2019

REACTIONS (1)
  - Sepsis [Fatal]

NARRATIVE: CASE EVENT DATE: 20200205
